FAERS Safety Report 6546816-7 (Version None)
Quarter: 2010Q1

REPORT INFORMATION
  Report Type: 
  Country: None (occurrence: None)
  Receive Date: 20100119
  Receipt Date: 20100105
  Transmission Date: 20100710
  Serious: Yes (Hospitalization)
  Sender: FDA-Public Use
  Company Number: RENA-1000607

PATIENT
  Age: 55 Year
  Sex: Male

DRUGS (14)
  1. RENAGEL [Suspect]
     Indication: HYPERPHOSPHATAEMIA
     Dosage: 0.8 G, TID, ORAL
     Route: 048
     Dates: start: 20080922, end: 20081210
  2. ARANESP [Concomitant]
  3. CLONDINE (CLONIDINE) [Concomitant]
  4. DIALYVITE [Concomitant]
  5. SS ASPART INSULIN [Concomitant]
  6. ISOSORBIDE (ISOSIRBIDE) [Concomitant]
  7. LANTUS [Concomitant]
  8. LISINOPRIL [Concomitant]
  9. METOCLOPRAMIDE [Concomitant]
  10. MS CONTIN (MORPHINE SULPHATE) [Concomitant]
  11. PANTOPRAZOLE SODIUM [Concomitant]
  12. VENOFER [Concomitant]
  13. ZEMPLAR [Concomitant]
  14. ZOFRAN [Concomitant]

REACTIONS (3)
  - CONDITION AGGRAVATED [None]
  - DIABETES MELLITUS [None]
  - IMPAIRED GASTRIC EMPTYING [None]
